FAERS Safety Report 8402270-1 (Version None)
Quarter: 2012Q2

REPORT INFORMATION
  Report Type: 
  Country: None (occurrence: None)
  Receive Date: 20120525
  Receipt Date: 20120516
  Transmission Date: 20120825
  Serious: No
  Sender: FDA-Public Use
  Company Number: 2012SP026330

PATIENT
  Sex: Female

DRUGS (2)
  1. SYCREST (ASENAPINE /05706901/) [Suspect]
     Indication: BIPOLAR DISORDER
     Dosage: 5 MG
  2. DEPAKENE [Concomitant]

REACTIONS (2)
  - HYPOTENSION [None]
  - BRADYCARDIA [None]
